FAERS Safety Report 7450721-1 (Version None)
Quarter: 2011Q2

REPORT INFORMATION
  Report Type: 
  Country: None (occurrence: None)
  Receive Date: 20110429
  Receipt Date: 20110429
  Transmission Date: 20111010
  Serious: No
  Sender: FDA-Public Use
  Company Number: None

PATIENT
  Age: 48 Year
  Sex: Female
  Weight: 61.6892 kg

DRUGS (1)
  1. ALPRAZOLAM [Suspect]
     Indication: ANXIETY
     Dosage: 1MG 1 BID PO
     Route: 048
     Dates: start: 20110404, end: 20110426

REACTIONS (1)
  - HEADACHE [None]
